FAERS Safety Report 24857028 (Version 1)
Quarter: 2025Q1

REPORT INFORMATION
  Report Type: Spontaneous
  Country: JP (occurrence: JP)
  Receive Date: 20250117
  Receipt Date: 20250117
  Transmission Date: 20250409
  Serious: Yes (Other)
  Sender: GUERBET
  Company Number: JP-GUERBETG_JAPAN-JP-20250001

PATIENT
  Age: 63 Year
  Sex: Male

DRUGS (2)
  1. LIPIODOL [Suspect]
     Active Substance: ETHIODIZED OIL
     Indication: Hepatocellular carcinoma
     Dosage: LIPOIDOL 5 MG ONE SHOT FOLLOWED BY 5FU 250 MG X 5 DAYS
  2. FLUOROURACIL [Concomitant]
     Active Substance: FLUOROURACIL
     Indication: Hepatocellular carcinoma
     Dosage: LIPOIDOL 5 MG ONE SHOT FOLLOWED BY 5FU 250 MG X 5 DAYS

REACTIONS (1)
  - Tumour thrombosis [Not Recovered/Not Resolved]
